FAERS Safety Report 7335048-0 (Version None)
Quarter: 2011Q1

REPORT INFORMATION
  Report Type: 
  Country: None (occurrence: None)
  Receive Date: 20110302
  Receipt Date: 20110302
  Transmission Date: 20110831
  Serious: No
  Sender: FDA-Public Use
  Company Number: None

PATIENT
  Age: 81 Year
  Sex: Female
  Weight: 48.5349 kg

DRUGS (2)
  1. NORTRIPTYLINE HCL [Suspect]
     Indication: DEPRESSION
     Dosage: ONE CAPSULE DAILY ORAL
     Route: 048
     Dates: start: 20101230
  2. NORTRIPTYLINE HCL [Suspect]
     Indication: PAIN
     Dosage: ONE CAPSULE DAILY ORAL
     Route: 048
     Dates: start: 20101230

REACTIONS (3)
  - PRODUCT SUBSTITUTION ISSUE [None]
  - NIGHTMARE [None]
  - MIDDLE INSOMNIA [None]
